FAERS Safety Report 24278561 (Version 1)
Quarter: 2024Q3

REPORT INFORMATION
  Report Type: Spontaneous
  Country: CN (occurrence: None)
  Receive Date: 20240903
  Receipt Date: 20240903
  Transmission Date: 20241016
  Serious: Yes (Other)
  Sender: ASTRAZENECA
  Company Number: 2024A196508

PATIENT
  Age: 51 Year
  Sex: Male

DRUGS (3)
  1. ROSUVASTATIN [Suspect]
     Active Substance: ROSUVASTATIN\ROSUVASTATIN CALCIUM
     Indication: Cerebral infarction
     Route: 048
     Dates: start: 20240729, end: 20240730
  2. BACLOFEN [Concomitant]
     Active Substance: BACLOFEN
     Indication: Cerebral infarction
     Route: 048
     Dates: start: 20240729, end: 20240730
  3. ESCITALOPRAM OXALATE [Concomitant]
     Active Substance: ESCITALOPRAM OXALATE
     Indication: Cerebral infarction
     Route: 048
     Dates: start: 20240729, end: 20240730

REACTIONS (1)
  - Drug-induced liver injury [Recovering/Resolving]

NARRATIVE: CASE EVENT DATE: 20240730
